FAERS Safety Report 10702604 (Version 2)
Quarter: 2015Q3

REPORT INFORMATION
  Report Type: Spontaneous
  Country: DK (occurrence: DK)
  Receive Date: 20150109
  Receipt Date: 20150910
  Transmission Date: 20151125
  Serious: Yes (Hospitalization)
  Sender: FDA-Public Use
  Company Number: DK-ALLERGAN-1500181US

PATIENT
  Age: 60 Year
  Sex: Male
  Weight: 83 kg

DRUGS (1)
  1. GANFORT [Suspect]
     Active Substance: BIMATOPROST\TIMOLOL
     Indication: GLAUCOMA
     Dosage: 3 MG
     Route: 047
     Dates: start: 20140605, end: 20140605

REACTIONS (7)
  - Disturbance in attention [Recovering/Resolving]
  - Petit mal epilepsy [Recovering/Resolving]
  - Dizziness [Recovering/Resolving]
  - Amnesia [Recovered/Resolved]
  - Dissociation [Unknown]
  - Skin burning sensation [Recovering/Resolving]
  - Headache [Recovering/Resolving]

NARRATIVE: CASE EVENT DATE: 20140605
